FAERS Safety Report 7031373-1 (Version None)
Quarter: 2010Q4

REPORT INFORMATION
  Report Type: 
  Country: None (occurrence: None)
  Receive Date: 20101006
  Receipt Date: 20100929
  Transmission Date: 20110411
  Serious: Yes (Hospitalization)
  Sender: FDA-Public Use
  Company Number: US-US-EMD SERONO, INC.-7013243

PATIENT
  Sex: Female
  Weight: 59 kg

DRUGS (15)
  1. REBIF [Suspect]
     Indication: MULTIPLE SCLEROSIS
     Route: 058
     Dates: start: 20100408, end: 20100401
  2. REBIF [Suspect]
     Route: 058
     Dates: start: 20100421, end: 20100510
  3. REBIF [Suspect]
     Route: 058
     Dates: start: 20100629, end: 20100726
  4. WELLBUTRIN XL [Concomitant]
     Dates: end: 20100513
  5. PERCOCET [Concomitant]
     Dates: end: 20100513
  6. AMBIEN CR [Concomitant]
     Dates: end: 20100513
  7. ASPIRIN [Concomitant]
     Dates: end: 20100513
  8. ASPIRIN [Concomitant]
     Dates: start: 20100101
  9. FUROSEMIDE [Concomitant]
     Dates: end: 20100513
  10. BACLOFEN [Concomitant]
     Dates: end: 20100513
  11. ROPINIROLE [Concomitant]
     Dates: end: 20100513
  12. SEPTRA DS [Concomitant]
     Dates: end: 20100513
  13. BONIVA [Concomitant]
     Dates: end: 20100513
  14. DIAZEPAM [Concomitant]
     Dates: end: 20100513
  15. CYMBALTA [Concomitant]
     Indication: PARAESTHESIA

REACTIONS (12)
  - BLOOD PRESSURE ABNORMAL [None]
  - CEREBROVASCULAR ACCIDENT [None]
  - DRUG SPECIFIC ANTIBODY PRESENT [None]
  - EOSINOPHILIA [None]
  - MENTAL STATUS CHANGES [None]
  - MULTIPLE SCLEROSIS RELAPSE [None]
  - PAIN [None]
  - PSYCHIATRIC SYMPTOM [None]
  - RASH [None]
  - SINUSITIS [None]
  - UNRESPONSIVE TO STIMULI [None]
  - URINARY TRACT INFECTION [None]
